FAERS Safety Report 14837441 (Version 1)
Quarter: 2018Q2

REPORT INFORMATION
  Report Type: Spontaneous
  Country: US (occurrence: US)
  Receive Date: 20180502
  Receipt Date: 20180502
  Transmission Date: 20180711
  Serious: No
  Sender: FDA-Public Use
  Company Number: US-PFIZER INC-2017271793

PATIENT
  Age: 67 Year
  Sex: Male
  Weight: 120.2 kg

DRUGS (54)
  1. DUONEB [Concomitant]
     Active Substance: ALBUTEROL SULFATE\IPRATROPIUM BROMIDE
     Dosage: 1 DF, 2X/DAY
     Route: 048
     Dates: start: 20170210
  2. PRILOSEC [Concomitant]
     Active Substance: OMEPRAZOLE MAGNESIUM
     Dosage: 20 MG, 2X/DAY, (TAKE 1 CAP BY MOUTH 2 TIMES DAILY)
     Route: 048
     Dates: start: 20121231, end: 20140203
  3. PRILOSEC [Concomitant]
     Active Substance: OMEPRAZOLE MAGNESIUM
     Dosage: 20 MG, 2X/DAY, (TAKE ONE CAPSULE BY MOUTH TWICE DAILY)
     Dates: start: 20120905, end: 20121230
  4. PRILOSEC [Concomitant]
     Active Substance: OMEPRAZOLE MAGNESIUM
     Dosage: 20 MG, 2X/DAY, (TAKE ONE CAPSULE BY MOUTH TWICE DAILY)
     Route: 048
     Dates: start: 20120531, end: 20120905
  5. ALBUTEROL HFA [Concomitant]
     Active Substance: ALBUTEROL SULFATE
     Dosage: UNK, EVERY 4 HRS, (INHALE 2 PUFFS BY MOUTH EVERY 4 HOURS)
     Route: 048
     Dates: start: 20111108, end: 20130205
  6. PROVENTIL [Concomitant]
     Active Substance: ALBUTEROL
     Dosage: UNK, AS NEEDED, (INHALE 2 PUFFS BY MOUTH EVERY 6 HOURS AS NEEDED)
     Route: 048
     Dates: start: 20111103, end: 20111108
  7. VENTOLIN [Concomitant]
     Active Substance: ALBUTEROL SULFATE
     Dosage: UNK, EVERY 4 HRS, (INHALE 2 PUFFS BY MOUTH EVERY 4 HOURS)
     Dates: start: 20130205
  8. LYRICA [Suspect]
     Active Substance: PREGABALIN
     Indication: NEUROPATHY PERIPHERAL
     Dosage: 100 MG, 3X/DAY
     Route: 048
     Dates: start: 201802
  9. DELTASONE [Concomitant]
     Active Substance: PREDNISONE
     Dosage: 2 DF, 3X/DAY
     Route: 048
  10. SYNTHROID [Concomitant]
     Active Substance: LEVOTHYROXINE SODIUM
     Dosage: 125 UG, DAILY, (TAKE ONE TABLET BY MOUTH EVERY DAY BEFORE BREAKFAST)
     Route: 048
     Dates: start: 20140404
  11. CELEXA [Concomitant]
     Active Substance: CITALOPRAM HYDROBROMIDE
     Dosage: 20 MG, 1X/DAY, (TAKE ONE TAB BY MOUTH ONCE DAILY)
     Route: 048
     Dates: start: 20130123, end: 20140129
  12. VENTOLIN [Concomitant]
     Active Substance: ALBUTEROL SULFATE
     Dosage: UNK, EVERY 4 HRS, (INHALE TWO PUFF BY MOUTH EVERY 4 HOURS)
     Route: 048
     Dates: start: 20130205, end: 20131015
  13. VENTOLIN [Concomitant]
     Active Substance: ALBUTEROL SULFATE
     Dosage: 2.5 MG, 4X/DAY, (INHALE 2.5 MG BY MOUTH EVERY 6 HOURS)
     Route: 048
     Dates: start: 20111103
  14. EPIPEN [Concomitant]
     Active Substance: EPINEPHRINE
     Indication: ANAPHYLACTIC REACTION
     Dosage: 0.3 ML, AS NEEDED
     Route: 030
     Dates: start: 20111108
  15. SKELAXINE [Concomitant]
     Active Substance: ACETAMINOPHEN\CHLORZOXAZONE
     Dosage: UNK
  16. PRINIVIL [Concomitant]
     Active Substance: LISINOPRIL
     Dosage: 1 DF, 1X/DAY, (TAKE 1 TAB BY MOUTH ONCE DAILY)
     Route: 048
     Dates: start: 20120130, end: 20120130
  17. ZESTRIL [Concomitant]
     Active Substance: LISINOPRIL
     Dosage: UNK
     Dates: start: 20131222
  18. VENTOLIN [Concomitant]
     Active Substance: ALBUTEROL SULFATE
     Dosage: UNK UNK, EVERY 4 HRS, (INHALE 2 PUFFS BY MOUTH EVERY 4 HOURS)
     Route: 048
     Dates: start: 20131015
  19. PRILOSEC [Concomitant]
     Active Substance: OMEPRAZOLE MAGNESIUM
     Dosage: 20 MG, 2X/DAY, (TAKE 1 CAP BY MOUTH 2 TIMES DAILY, BEFORE BREAKFAST AND SUPPER)
     Route: 048
     Dates: start: 20140508
  20. PRINIVIL [Concomitant]
     Active Substance: LISINOPRIL
     Dosage: UNK
     Dates: start: 20131222
  21. ZESTRIL [Concomitant]
     Active Substance: LISINOPRIL
     Dosage: 1 DF, 2X/DAY
     Route: 048
     Dates: start: 20120130, end: 20120201
  22. ALBUTEROL HFA [Concomitant]
     Active Substance: ALBUTEROL SULFATE
     Dosage: UNK UNK, EVERY 4 HRS, (INHALE 2 PUFFS BY MOUTH EVERY 4 HOURS)
     Dates: start: 20131015
  23. ALBUTEROL HFA [Concomitant]
     Active Substance: ALBUTEROL SULFATE
     Dosage: UNK, (INHALE TWO PUFF BY MOUTH EVERY 4 HOURS)
     Route: 048
     Dates: start: 20130205, end: 20131015
  24. PROVENTIL [Concomitant]
     Active Substance: ALBUTEROL
     Dosage: UNK, (INHALE TWO PUFF BY MOUTH EVERY 4 HOURS)
     Route: 048
     Dates: start: 20130205, end: 20131015
  25. VENTOLIN [Concomitant]
     Active Substance: ALBUTEROL SULFATE
     Dosage: UNK, AS NEEDED, (INHALE 2 PUFFS BY MOUTH EVERY 6 HOURS AS NEEDED)
     Route: 048
     Dates: start: 20111103, end: 20111108
  26. SINGULAIR [Concomitant]
     Active Substance: MONTELUKAST SODIUM
     Dosage: 10 MG, 1X/DAY, (TAKE 1 TAB BY MOUTH AT BEDTIME)
     Route: 048
     Dates: start: 20111103, end: 20111108
  27. PRILOSEC [Concomitant]
     Active Substance: OMEPRAZOLE MAGNESIUM
     Dosage: 20 MG, 2X/DAY, (TAKE 1 CAP BY MOUTH 2 TIMES DAILY, BEFORE BREAKFAST AND SUPPLER)
     Route: 048
     Dates: start: 20140204
  28. PRILOSEC [Concomitant]
     Active Substance: OMEPRAZOLE MAGNESIUM
     Dosage: 20 MG, 2X/DAY, (TAKE ONE CAPSULE BY MOUTH TWICE DAILY)
     Route: 048
     Dates: start: 20121230, end: 20121231
  29. PRINIVIL [Concomitant]
     Active Substance: LISINOPRIL
     Dosage: 1 DF, DAILY
     Dates: start: 20130921, end: 20131222
  30. PRINIVIL [Concomitant]
     Active Substance: LISINOPRIL
     Dosage: 1 DF, DAILY
     Route: 048
     Dates: start: 20130324, end: 20130921
  31. ALBUTEROL HFA [Concomitant]
     Active Substance: ALBUTEROL SULFATE
     Dosage: UNK, AS NEEDED, (INHALE 2 PUFFS BY MOUTH EVERY 6 HOURS AS NEEDED)
     Dates: start: 20111103, end: 20111108
  32. PROVENTIL [Concomitant]
     Active Substance: ALBUTEROL
     Dosage: UNK UNK, EVERY 4 HRS, (INHALE 2 PUFFS BY MOUTH EVERY 4 HOURS)
     Route: 048
     Dates: start: 20131015
  33. TESSALON [Concomitant]
     Active Substance: BENZONATATE
     Dosage: UNK
  34. PRILOSEC [Concomitant]
     Active Substance: OMEPRAZOLE MAGNESIUM
     Dosage: 20 MG, 2X/DAY
     Route: 048
     Dates: start: 20111108, end: 20111111
  35. ZESTRIL [Concomitant]
     Active Substance: LISINOPRIL
     Dosage: 1 DF, DAILY
     Route: 048
     Dates: start: 20130324, end: 20130921
  36. PROVENTIL [Concomitant]
     Active Substance: ALBUTEROL
     Dosage: 2.5 MG, 4X/DAY
     Route: 048
     Dates: start: 20111103
  37. SINGULAIR [Concomitant]
     Active Substance: MONTELUKAST SODIUM
     Dosage: 10 MG, 1X/DAY, (TAKE 1 TAB BY MOUTH AT BEDTIME)
     Route: 048
     Dates: start: 20130115, end: 20131015
  38. SINGULAIR [Concomitant]
     Active Substance: MONTELUKAST SODIUM
     Dosage: 10 MG, 1X/DAY, (TAKE 1 TAB BY MOUTH AT BEDTIME)
     Route: 048
     Dates: start: 20121113, end: 20130115
  39. SINGULAIR [Concomitant]
     Active Substance: MONTELUKAST SODIUM
     Dosage: 10 MG, 1X/DAY, (TAKE 1 TAB BY MOUTH AT BEDTIME)
     Route: 048
     Dates: start: 20111108, end: 20121231
  40. PRILOSEC [Concomitant]
     Active Substance: OMEPRAZOLE MAGNESIUM
     Dosage: 20 MG, 2X/DAY
     Route: 048
     Dates: start: 20140203, end: 20140204
  41. PRILOSEC [Concomitant]
     Active Substance: OMEPRAZOLE MAGNESIUM
     Dosage: 20 MG, UNK
     Route: 048
     Dates: start: 20111111, end: 20120531
  42. CELEXA [Concomitant]
     Active Substance: CITALOPRAM HYDROBROMIDE
     Dosage: 20 MG, 1X/DAY
     Route: 048
     Dates: start: 20120328, end: 20121231
  43. CELEXA [Concomitant]
     Active Substance: CITALOPRAM HYDROBROMIDE
     Dosage: 20 MG, 1X/DAY
     Route: 048
     Dates: start: 20120208, end: 20120328
  44. ZESTRIL [Concomitant]
     Active Substance: LISINOPRIL
     Dosage: 1 DF, DAILY
     Route: 048
     Dates: start: 20130921, end: 20131222
  45. ZESTRIL [Concomitant]
     Active Substance: LISINOPRIL
     Dosage: 1 DF, 1X/DAY
     Route: 048
     Dates: start: 20120130, end: 20120130
  46. PROVENTIL [Concomitant]
     Active Substance: ALBUTEROL
     Dosage: UNK, EVERY 4 HRS, (INHALE 2 PUFFS BY MOUTH EVERY 4 HOURS)
     Route: 048
     Dates: start: 20130205
  47. SINGULAIR [Concomitant]
     Active Substance: MONTELUKAST SODIUM
     Dosage: 10 MG, DAILY, (TAKE 1 TAB BY MOUTH AT BEDTIME)
     Route: 048
     Dates: start: 20131015
  48. SINGULAIR [Concomitant]
     Active Substance: MONTELUKAST SODIUM
     Dosage: 10 MG, 1X/DAY, (TAKE 10 MG BY MOUTH AT BEDTIME)
     Route: 048
     Dates: start: 20130115, end: 20131015
  49. CELEXA [Concomitant]
     Active Substance: CITALOPRAM HYDROBROMIDE
     Dosage: 1 DF, DAILY
     Route: 048
     Dates: start: 20140129
  50. CELEXA [Concomitant]
     Active Substance: CITALOPRAM HYDROBROMIDE
     Dosage: 20 MG, 1X/DAY
     Route: 048
     Dates: start: 20121231, end: 20130123
  51. CELEXA [Concomitant]
     Active Substance: CITALOPRAM HYDROBROMIDE
     Dosage: 40 MG, 1X/DAY, (TAKE 1 TAB BY MOUTH ONCE DAILY)
     Route: 048
     Dates: start: 20121002, end: 20121231
  52. PRINIVIL [Concomitant]
     Active Substance: LISINOPRIL
     Dosage: 1 DF, 1X/DAY
     Route: 048
     Dates: start: 20120201, end: 20130324
  53. PRINIVIL [Concomitant]
     Active Substance: LISINOPRIL
     Dosage: 1 DF, 2X/DAY
     Route: 048
     Dates: start: 20120130, end: 20120201
  54. ALBUTEROL /00139501/ [Concomitant]
     Active Substance: ALBUTEROL
     Dosage: 2.5 MG, 4X/DAY, (INHALE 2.5 MG BY MOUTH EVERY 6 HOURS)
     Route: 048

REACTIONS (1)
  - Somnolence [Not Recovered/Not Resolved]

NARRATIVE: CASE EVENT DATE: 201802
